FAERS Safety Report 4736998-1 (Version None)
Quarter: 2005Q3

REPORT INFORMATION
  Report Type: 
  Country: None (occurrence: None)
  Receive Date: 20050804
  Receipt Date: 20050722
  Transmission Date: 20060218
  Serious: Yes (Other)
  Sender: FDA-Public Use
  Company Number: 2005104932

PATIENT
  Age: 63 Year
  Sex: Female
  Weight: 63.9 kg

DRUGS (5)
  1. SUDAFED 12 HOUR [Suspect]
     Indication: HEADACHE
  2. FLUDROCORTISONE ACETATE [Suspect]
     Indication: SYNCOPE VASOVAGAL
     Dosage: 0.05 MG, ORAL
     Route: 048
     Dates: start: 20050101, end: 20050501
  3. OMEPRAZOLE [Concomitant]
  4. TEMAZEPAM [Concomitant]
  5. CITALOPRAM (CITALOPRAM) [Concomitant]

REACTIONS (4)
  - DRUG INTERACTION [None]
  - EYE PAIN [None]
  - HEADACHE [None]
  - VISUAL ACUITY REDUCED [None]
